FAERS Safety Report 5484311-7 (Version None)
Quarter: 2007Q4

REPORT INFORMATION
  Report Type: 
  Country: None (occurrence: None)
  Receive Date: 20071012
  Receipt Date: 20070927
  Transmission Date: 20080405
  Serious: No
  Sender: FDA-Public Use
  Company Number: US-BOEHRINGER INGELHEIM PHARMACEUTICALS, INC.-2007-BP-18478BP

PATIENT
  Age: 71 Year
  Sex: Female

DRUGS (15)
  1. SPIRIVA [Suspect]
     Indication: CHRONIC OBSTRUCTIVE PULMONARY DISEASE
     Route: 055
     Dates: start: 20040101
  2. ADVAIR DISKUS 100/50 [Concomitant]
     Indication: CHRONIC OBSTRUCTIVE PULMONARY DISEASE
  3. ATENOLOL [Concomitant]
     Indication: HYPERTENSION
  4. OMEPRAZOLE [Concomitant]
  5. SIMVASTATIN [Concomitant]
  6. LORATADINE [Concomitant]
  7. ASPIRIN [Concomitant]
  8. OSTEO BI-FLEX [Concomitant]
  9. OMEGA 3 FISH OIL [Concomitant]
  10. ESTER-C [Concomitant]
  11. CENTRUM SLIVER [Concomitant]
  12. ACETAMINOPHEN [Concomitant]
  13. FLOVENT [Concomitant]
  14. COMBIVENT [Concomitant]
  15. PROVENTIL [Concomitant]

REACTIONS (2)
  - EYE PAIN [None]
  - MACULAR HOLE [None]
